FAERS Safety Report 7590974-2 (Version None)
Quarter: 2011Q3

REPORT INFORMATION
  Report Type: 
  Country: None (occurrence: None)
  Receive Date: 20110705
  Receipt Date: 20110630
  Transmission Date: 20111222
  Serious: Yes (Death, Other)
  Sender: FDA-Public Use
  Company Number: PHHY2011CO58984

PATIENT
  Sex: Male

DRUGS (3)
  1. AFINITOR [Suspect]
     Indication: RENAL CELL CARCINOMA
     Dosage: 10 MG PER DAY
     Route: 048
     Dates: start: 20110325, end: 20110617
  2. MORPHINE [Concomitant]
  3. OXYCODONONA [Concomitant]

REACTIONS (8)
  - ASTHENIA [None]
  - ABNORMAL BEHAVIOUR [None]
  - DEATH [None]
  - WEIGHT DECREASED [None]
  - APATHY [None]
  - DEPRESSED MOOD [None]
  - DECREASED APPETITE [None]
  - HALLUCINATION [None]
